FAERS Safety Report 6430126-2 (Version None)
Quarter: 2009Q4

REPORT INFORMATION
  Report Type: 
  Country: None (occurrence: None)
  Receive Date: 20091104
  Receipt Date: 20091023
  Transmission Date: 20100525
  Serious: Yes (Death, Hospitalization)
  Sender: FDA-Public Use
  Company Number: 2009AC000330

PATIENT
  Age: 69 Year
  Sex: Female

DRUGS (8)
  1. DIGOXIN [Suspect]
     Dosage: 0.125 MG;QD;PO
     Route: 048
     Dates: start: 20040101, end: 20080101
  2. COUMADIN [Concomitant]
  3. METOPROLOL [Concomitant]
  4. TRICOR [Concomitant]
  5. SIMVASTATIN [Concomitant]
  6. COMBIVENT [Concomitant]
  7. NITROGLYCERIN [Concomitant]
  8. VITAMINS [Concomitant]

REACTIONS (10)
  - ANOXIC ENCEPHALOPATHY [None]
  - ATRIAL FIBRILLATION [None]
  - CARDIAC ARREST [None]
  - DYSPNOEA [None]
  - EMOTIONAL DISORDER [None]
  - ISCHAEMIC CARDIOMYOPATHY [None]
  - MENTAL DISORDER [None]
  - PAIN [None]
  - QUALITY OF LIFE DECREASED [None]
  - VENTRICULAR FIBRILLATION [None]
